FAERS Safety Report 18262809 (Version 1)
Quarter: 2020Q3

REPORT INFORMATION
  Report Type: Spontaneous
  Country: US (occurrence: US)
  Receive Date: 20200914
  Receipt Date: 20200914
  Transmission Date: 20201103
  Serious: No
  Sender: FDA-Public Use
  Company Number: US-TEVA-2020-US-1827588

PATIENT
  Age: 32 Year
  Sex: Female

DRUGS (2)
  1. CLONAZEPAM TEVA [Suspect]
     Active Substance: CLONAZEPAM
     Indication: ANXIETY
     Dosage: START DATE: FOUR AND HALF YEARS AGO
     Route: 065
     Dates: end: 20200828
  2. CLONAZEPAM TEVA [Suspect]
     Active Substance: CLONAZEPAM
     Indication: PANIC DISORDER
     Route: 065
     Dates: start: 20200904

REACTIONS (3)
  - Renal function test abnormal [Unknown]
  - Drug screen negative [Unknown]
  - Weight increased [Unknown]

NARRATIVE: CASE EVENT DATE: 202008
